FAERS Safety Report 8780721 (Version 3)
Quarter: 2013Q4

REPORT INFORMATION
  Report Type: Report from Study
  Country: US (occurrence: US)
  Receive Date: 20120913
  Receipt Date: 20131018
  Transmission Date: 20140711
  Serious: Yes (Death, Hospitalization)
  Sender: FDA-Public Use
  Company Number: US-ROCHE-1071716

PATIENT
  Age: 60 Year
  Sex: Female
  Weight: 117.8 kg

DRUGS (18)
  1. VASCULAR ENDOTHELIAL GROWTH FACTOR INHIBITOR NOS [Suspect]
     Indication: BREAST CANCER
     Dosage: ON 01 AND 08 OF 21-DAY CYCLE
     Route: 042
     Dates: start: 20120507, end: 20120507
  2. CAPECITABINE [Suspect]
     Indication: BREAST CANCER
     Route: 048
     Dates: start: 20120507, end: 20120509
  3. HYDROCHLOROTHIAZIDE [Concomitant]
  4. NEURONTIN [Concomitant]
     Route: 065
     Dates: start: 2009
  5. FENTANYL [Concomitant]
     Route: 065
     Dates: start: 201112
  6. HYDROMORPHONE [Concomitant]
     Route: 065
     Dates: start: 201112
  7. SENOKOT-S [Concomitant]
     Route: 065
     Dates: start: 201112
  8. LASIX [Concomitant]
     Route: 065
     Dates: start: 2008
  9. FLONASE [Concomitant]
     Route: 065
     Dates: start: 2009
  10. SYNTHROID [Concomitant]
     Route: 065
     Dates: start: 1993
  11. RANITIDINE [Concomitant]
     Route: 065
     Dates: start: 2002
  12. LISINOPRIL [Concomitant]
     Route: 065
     Dates: start: 201203
  13. TOPROL [Concomitant]
     Route: 065
     Dates: start: 1993
  14. ASPIRIN [Concomitant]
     Route: 065
     Dates: start: 1993
  15. CLARITIN-D [Concomitant]
     Route: 065
     Dates: start: 2009
  16. PROMETHAZINE [Concomitant]
     Route: 065
     Dates: start: 2009
  17. XGEVA [Concomitant]
     Route: 065
     Dates: start: 201201
  18. CLONIDINE [Concomitant]

REACTIONS (4)
  - Respiratory failure [Fatal]
  - Dehydration [Recovered/Resolved]
  - Renal failure [Recovered/Resolved]
  - Pulmonary oedema [Unknown]
